FAERS Safety Report 20946296 (Version 1)
Quarter: 2022Q2

REPORT INFORMATION
  Report Type: Spontaneous
  Country: US (occurrence: None)
  Receive Date: 20220610
  Receipt Date: 20220610
  Transmission Date: 20220721
  Serious: Yes (Hospitalization)
  Sender: FDA-Public Use
  Company Number: None

PATIENT
  Sex: Male
  Weight: 108.4 kg

DRUGS (3)
  1. METHOTREXATE [Suspect]
     Active Substance: METHOTREXATE
  2. SPRYCEL [Concomitant]
     Active Substance: DASATINIB
  3. VINCRISTINE SULFATE [Concomitant]

REACTIONS (3)
  - Body temperature increased [None]
  - Sepsis [None]
  - Therapy cessation [None]

NARRATIVE: CASE EVENT DATE: 20220404
